FAERS Safety Report 4703348-6 (Version None)
Quarter: 2005Q2

REPORT INFORMATION
  Report Type: 
  Country: None (occurrence: None)
  Receive Date: 20050624
  Receipt Date: 20050412
  Transmission Date: 20051028
  Serious: No
  Sender: FDA-Public Use
  Company Number: 2005BI001742

PATIENT
  Age: 53 Year
  Sex: Female

DRUGS (12)
  1. NATALIZUMAB [Suspect]
     Indication: MULTIPLE SCLEROSIS
     Dosage: 300 MG;QM;IV
     Route: 042
     Dates: start: 20050114, end: 20050210
  2. DETROL [Concomitant]
  3. ZOLOFT [Concomitant]
  4. PROVIGIL [Concomitant]
  5. MEVACOR [Concomitant]
  6. DEXEDRINE [Concomitant]
  7. PREVACID [Concomitant]
  8. ESTRADIOL;NORGESTIMATE [Concomitant]
  9. IMITREX [Concomitant]
  10. NEURONTIN [Concomitant]
  11. ZOCOR [Concomitant]
  12. GINKO-BILOBA (VITAMINE) [Concomitant]

REACTIONS (1)
  - HYPERSENSITIVITY [None]
